FAERS Safety Report 12060005 (Version 1)
Quarter: 2016Q1

REPORT INFORMATION
  Report Type: Spontaneous
  Country: US (occurrence: US)
  Receive Date: 20160210
  Receipt Date: 20160210
  Transmission Date: 20160526
  Serious: No
  Sender: FDA-Public Use
  Company Number: US-009507513-1602USA005255

PATIENT
  Age: 63 Year
  Sex: Female

DRUGS (1)
  1. BELSOMRA [Suspect]
     Active Substance: SUVOREXANT
     Indication: INSOMNIA
     Dosage: ONE 10 MG TABLET DAILY
     Route: 048
     Dates: start: 20160205

REACTIONS (4)
  - Drug ineffective [Unknown]
  - Musculoskeletal discomfort [Unknown]
  - Back disorder [Unknown]
  - Blood cholesterol abnormal [Unknown]

NARRATIVE: CASE EVENT DATE: 201602
